FAERS Safety Report 6668284-7 (Version None)
Quarter: 2010Q2

REPORT INFORMATION
  Report Type: 
  Country: None (occurrence: None)
  Receive Date: 20100405
  Receipt Date: 20100405
  Transmission Date: 20101027
  Serious: Yes (Hospitalization)
  Sender: FDA-Public Use
  Company Number: None

PATIENT
  Age: 45 Year
  Sex: Male
  Weight: 105.2 kg

DRUGS (1)
  1. CLOZARIL [Suspect]
     Indication: SCHIZOAFFECTIVE DISORDER
     Dosage: MG PO
     Route: 048
     Dates: start: 20091218, end: 20100115

REACTIONS (2)
  - EOSINOPHILIC PNEUMONIA [None]
  - NOSOCOMIAL INFECTION [None]
